FAERS Safety Report 7995730-9 (Version None)
Quarter: 2011Q4

REPORT INFORMATION
  Report Type: 
  Country: None (occurrence: None)
  Receive Date: 20111220
  Receipt Date: 20111212
  Transmission Date: 20120403
  Serious: Yes (Hospitalization)
  Sender: FDA-Public Use
  Company Number: US-SANOFI-AVENTIS-2011SA081512

PATIENT
  Age: 85 Year
  Sex: Female
  Weight: 52 kg

DRUGS (2)
  1. HEPARIN [Concomitant]
     Dates: start: 20110401, end: 20110401
  2. PLAVIX [Suspect]
     Indication: STENT PLACEMENT
     Route: 048
     Dates: start: 20110301

REACTIONS (4)
  - CARDIAC PACEMAKER INSERTION [None]
  - HERNIA [None]
  - CAROTID ARTERY OCCLUSION [None]
  - ALOPECIA [None]
